FAERS Safety Report 11062296 (Version 1)
Quarter: 2015Q2

REPORT INFORMATION
  Report Type: Spontaneous
  Country: US (occurrence: None)
  Receive Date: 20150423
  Receipt Date: 20150423
  Transmission Date: 20150821
  Serious: Yes (Other)
  Sender: FDA-Public Use
  Company Number: None

PATIENT
  Age: 71 Year
  Sex: Female

DRUGS (2)
  1. CAPECITABINE 500MG TEVA [Suspect]
     Active Substance: CAPECITABINE
     Indication: BONE CANCER
     Route: 048
     Dates: start: 20150227, end: 20150408
  2. CAPECITABINE 500MG TEVA [Suspect]
     Active Substance: CAPECITABINE
     Indication: SECOND PRIMARY MALIGNANCY
     Route: 048
     Dates: start: 20150227, end: 20150408

REACTIONS (2)
  - Vomiting [None]
  - Asthenia [None]

NARRATIVE: CASE EVENT DATE: 20150408
